FAERS Safety Report 22781160 (Version 7)
Quarter: 2023Q4

REPORT INFORMATION
  Report Type: Spontaneous
  Country: CA (occurrence: CA)
  Receive Date: 20230803
  Receipt Date: 20231116
  Transmission Date: 20240110
  Serious: Yes (Hospitalization, Other)
  Sender: FDA-Public Use
  Company Number: CA-CELLTRION INC.-2023CA008103

PATIENT

DRUGS (7)
  1. INFLECTRA [Suspect]
     Active Substance: INFLIXIMAB-DYYB
     Indication: Crohn^s disease
     Dosage: 10 MG/KG (RESCUE DOSE), W2, W6 AND Q8 WEEKS
     Route: 042
     Dates: start: 20230404, end: 20230517
  2. INFLECTRA [Suspect]
     Active Substance: INFLIXIMAB-DYYB
     Dosage: 10 MG/KG RESCUE DOSE, W2, W6 AND Q8 WEEKS
     Route: 042
     Dates: start: 20230404, end: 20230517
  3. INFLECTRA [Suspect]
     Active Substance: INFLIXIMAB-DYYB
     Dosage: 1000 MG, WEEK 2 INDUCTION DOSE
     Route: 042
     Dates: start: 20230419
  4. INFLECTRA [Suspect]
     Active Substance: INFLIXIMAB-DYYB
     Dosage: 1000 MG RELOAD, W0, W2, W6 AND Q 4 WEEKS
     Route: 042
     Dates: start: 20230711
  5. INFLECTRA [Suspect]
     Active Substance: INFLIXIMAB-DYYB
     Dosage: 1000 MG WEEK 2 REINDUCTION DOSE
     Route: 042
     Dates: start: 20230725
  6. INFLECTRA [Suspect]
     Active Substance: INFLIXIMAB-DYYB
     Dosage: 1000 MG, 3 WEEKS AND 6 DAYS,(RELOAD, W0, W2, W6 AND Q 4 WEEKS)
     Route: 042
     Dates: start: 20230821
  7. PREDNISONE [Concomitant]
     Active Substance: PREDNISONE
     Dosage: UNK, TAPERED OFF

REACTIONS (20)
  - Mental disorder [Unknown]
  - Migraine [Recovering/Resolving]
  - Seizure [Recovering/Resolving]
  - Myocardial infarction [Recovering/Resolving]
  - Transient ischaemic attack [Recovering/Resolving]
  - Crying [Recovering/Resolving]
  - Loss of consciousness [Recovered/Resolved]
  - Blood glucose increased [Unknown]
  - Drug specific antibody present [Unknown]
  - Off label use [Unknown]
  - Off label use [Unknown]
  - Neurological symptom [Unknown]
  - Exposure to communicable disease [Unknown]
  - Nausea [Recovered/Resolved]
  - Dizziness [Recovered/Resolved]
  - Pruritus [Recovered/Resolved]
  - Aphonia [Recovered/Resolved]
  - Dysphonia [Unknown]
  - Malaise [Unknown]
  - Infusion related reaction [Unknown]

NARRATIVE: CASE EVENT DATE: 20230401
